FAERS Safety Report 4545396-5 (Version None)
Quarter: 2005Q1

REPORT INFORMATION
  Report Type: 
  Country: None (occurrence: None)
  Receive Date: 20050103
  Receipt Date: 20041229
  Transmission Date: 20050727
  Serious: Yes (Disabling)
  Sender: FDA-Public Use
  Company Number: TCI2003A02528

PATIENT
  Age: 72 Year
  Sex: Male

DRUGS (6)
  1. LANSOPRAZOLE [Suspect]
     Indication: GASTRIC ULCER
     Dosage: 30 MG (15 MG, 2 IN 1 D) PER ORAL
     Route: 048
     Dates: start: 20030616, end: 20030623
  2. LANSOPRAZOLE [Suspect]
     Indication: NEOPLASM MALIGNANT
     Dosage: 30 MG (15 MG, 2 IN 1 D) PER ORAL
     Route: 048
     Dates: start: 20030616, end: 20030623
  3. LANSOPRAZOLE [Suspect]
     Indication: ULCER HAEMORRHAGE
     Dosage: 30 MG (15 MG, 2 IN 1 D) PER ORAL
     Route: 048
     Dates: start: 20030616, end: 20030623
  4. ACTOS [Concomitant]
  5. GLIMEPIRIDE (TABLETS) [Concomitant]
  6. BROTIZOLAM (TABLETS) [Concomitant]

REACTIONS (7)
  - ASCITES [None]
  - BLOOD PRESSURE INCREASED [None]
  - BLOOD URINE PRESENT [None]
  - HAEMODIALYSIS [None]
  - NEPHRITIS INTERSTITIAL [None]
  - PLEURAL EFFUSION [None]
  - RENAL FAILURE ACUTE [None]
